FAERS Safety Report 7064809-0 (Version None)
Quarter: 2010Q4

REPORT INFORMATION
  Report Type: 
  Country: None (occurrence: None)
  Receive Date: 20101027
  Receipt Date: 19860311
  Transmission Date: 20110411
  Serious: Yes (Death, Life-Threatening, Hospitalization)
  Sender: FDA-Public Use
  Company Number: US-ROCHE-860200344001

PATIENT
  Age: 87 Year
  Sex: Male

DRUGS (8)
  1. CEFTRIAXONE SODIUM [Suspect]
     Route: 042
     Dates: start: 19860118, end: 19860118
  2. CEFTRIAXONE SODIUM [Suspect]
     Route: 042
     Dates: start: 19860119, end: 19860124
  3. LOPRESSOR [Concomitant]
     Route: 065
  4. STELAZINE [Concomitant]
     Route: 065
  5. ASPIRIN [Concomitant]
     Route: 065
  6. ACETAMINOPHEN [Concomitant]
     Route: 065
  7. MOM-HOT [Concomitant]
     Route: 065
  8. MYLANTA-II [Concomitant]
     Route: 065

REACTIONS (2)
  - PNEUMONIA [None]
  - PSEUDOMEMBRANOUS COLITIS [None]
